FAERS Safety Report 18027548 (Version 1)
Quarter: 2020Q3

REPORT INFORMATION
  Report Type: Spontaneous
  Country: US (occurrence: US)
  Receive Date: 20200715
  Receipt Date: 20200715
  Transmission Date: 20201103
  Serious: No
  Sender: FDA-Public Use
  Company Number: US-JNJFOC-20200721509

PATIENT
  Sex: Male

DRUGS (3)
  1. ERDAFITINIB. [Suspect]
     Active Substance: ERDAFITINIB
     Indication: PRODUCT USED FOR UNKNOWN INDICATION
     Route: 048
  2. OXYCODONE [Concomitant]
     Active Substance: OXYCODONE
  3. LYRICA [Concomitant]
     Active Substance: PREGABALIN

REACTIONS (1)
  - Adverse drug reaction [Unknown]
